FAERS Safety Report 24750847 (Version 1)
Quarter: 2024Q4

REPORT INFORMATION
  Report Type: Spontaneous
  Country: US (occurrence: US)
  Receive Date: 20241219
  Receipt Date: 20241219
  Transmission Date: 20250115
  Serious: Yes (Hospitalization)
  Sender: AMGEN
  Company Number: US-AMGEN-USASP2024246158

PATIENT
  Sex: Male

DRUGS (1)
  1. RAVICTI [Suspect]
     Active Substance: GLYCEROL PHENYLBUTYRATE
     Indication: Argininosuccinate synthetase deficiency
     Dosage: 0.7 MILLILITER, QID (TAKE 0.7 ML VIA G-TUBE FOUR (4) TIMES A DAY)

REACTIONS (2)
  - Unevaluable event [Unknown]
  - Therapy interrupted [Unknown]
